FAERS Safety Report 5662469-4 (Version None)
Quarter: 2008Q1

REPORT INFORMATION
  Report Type: 
  Country: None (occurrence: None)
  Receive Date: 20080313
  Receipt Date: 20080305
  Transmission Date: 20080703
  Serious: Yes (Other)
  Sender: FDA-Public Use
  Company Number: PHEH2007US14770

PATIENT
  Age: 70 Year
  Sex: Male
  Weight: 74.376 kg

DRUGS (9)
  1. ZOMETA [Suspect]
     Indication: OSTEOPOROSIS
     Dates: start: 20020215
  2. THALIDOMIDE [Concomitant]
     Indication: PROSTATE CANCER
     Dates: start: 20001218, end: 20010201
  3. LIPITOR [Concomitant]
     Dosage: 10MG QOD
  4. CELEBREX [Concomitant]
  5. PROSCAR [Concomitant]
     Indication: PROSTATE CANCER
     Dosage: 5 MG, QD
  6. LUPRON [Suspect]
     Indication: PROSTATE CANCER
     Dosage: UNK, UNK
     Dates: start: 19970422
  7. AREDIA [Suspect]
     Indication: OSTEOPOROSIS
     Dates: start: 19990101
  8. CARDURA                                 /IRE/ [Concomitant]
     Dosage: 4MG QD
  9. FOSAMAX [Concomitant]

REACTIONS (17)
  - BLOOD PARATHYROID HORMONE INCREASED [None]
  - BONE DEBRIDEMENT [None]
  - BONE DISORDER [None]
  - BONE SCAN ABNORMAL [None]
  - COLONIC POLYP [None]
  - FOLLICULAR THYROID CANCER [None]
  - GINGIVAL DISORDER [None]
  - GOITRE [None]
  - GYNAECOMASTIA [None]
  - HYPERPARATHYROIDISM [None]
  - INFECTION [None]
  - OSTEONECROSIS [None]
  - PAIN [None]
  - PARATHYROID TUMOUR BENIGN [None]
  - RADIOTHERAPY [None]
  - THYROIDECTOMY [None]
  - TOOTH EXTRACTION [None]
